FAERS Safety Report 5156315-5 (Version None)
Quarter: 2006Q4

REPORT INFORMATION
  Report Type: 
  Country: None (occurrence: None)
  Receive Date: 20061122
  Receipt Date: 20060911
  Transmission Date: 20070319
  Serious: Yes (Hospitalization)
  Sender: FDA-Public Use
  Company Number: US-GLAXOSMITHKLINE-B0439000A

PATIENT
  Age: 45 Year
  Sex: Female
  Weight: 48.1 kg

DRUGS (3)
  1. GW679769 [Suspect]
     Route: 048
     Dates: start: 20060807, end: 20060809
  2. ZOFRAN [Suspect]
     Dosage: 8MG PER DAY
     Route: 048
     Dates: start: 20060807, end: 20060809
  3. DEXAMETHASONE TAB [Suspect]
     Dosage: 8MG PER DAY
     Route: 042
     Dates: start: 20060807, end: 20060807

REACTIONS (1)
  - SYNCOPE [None]
